FAERS Safety Report 6808713-9 (Version None)
Quarter: 2010Q2

REPORT INFORMATION
  Report Type: 
  Country: None (occurrence: None)
  Receive Date: 20100629
  Receipt Date: 20090825
  Transmission Date: 20101027
  Serious: No
  Sender: FDA-Public Use
  Company Number: US-PFIZER INC-2009257260

PATIENT
  Sex: Male

DRUGS (3)
  1. VIAGRA [Suspect]
     Indication: ERECTILE DYSFUNCTION
     Dosage: 100 MG, UNK
  2. ALPRAZOLAM [Suspect]
  3. INDERAL [Suspect]
     Dosage: 20MG/DAY

REACTIONS (1)
  - BLOOD PRESSURE INCREASED [None]
